FAERS Safety Report 18692829 (Version 1)
Quarter: 2021Q1

REPORT INFORMATION
  Report Type: Spontaneous
  Country: FR (occurrence: FR)
  Receive Date: 20210104
  Receipt Date: 20210104
  Transmission Date: 20210419
  Serious: Yes (Hospitalization)
  Sender: FDA-Public Use
  Company Number: FR-AUROBINDO-AUR-APL-2020-064181

PATIENT
  Age: 60 Year
  Sex: Female

DRUGS (1)
  1. OXALIPLATIN. [Suspect]
     Active Substance: OXALIPLATIN
     Indication: COLON CANCER
     Dosage: 132 MILLIGRAM, CYCLICAL
     Route: 042
     Dates: start: 20200924, end: 20200924

REACTIONS (1)
  - Medical device site extravasation [Not Recovered/Not Resolved]

NARRATIVE: CASE EVENT DATE: 20200924
